FAERS Safety Report 19953634 (Version 1)
Quarter: 2021Q4

REPORT INFORMATION
  Report Type: Other
  Country: GB (occurrence: GB)
  Receive Date: 20211014
  Receipt Date: 20211014
  Transmission Date: 20220303
  Serious: Yes (Death, Life-Threatening, Hospitalization, Other)
  Sender: FDA-Public Use
  Company Number: GB-CELLTRION INC.-2021GB013987

PATIENT

DRUGS (9)
  1. INFLIXIMAB [Suspect]
     Active Substance: INFLIXIMAB
     Indication: Metastatic malignant melanoma
     Dosage: CYCLIC (CYCLE 1)
  2. PEMBROLIZUMAB [Suspect]
     Active Substance: PEMBROLIZUMAB
     Indication: Metastatic malignant melanoma
     Dosage: UNK
     Dates: start: 20210728
  3. BISOPROLOL [Concomitant]
     Active Substance: BISOPROLOL
  4. BUMETANIDE [Concomitant]
     Active Substance: BUMETANIDE
  5. CHLORPHENIRAMINE [Concomitant]
     Active Substance: CHLORPHENIRAMINE
  6. MORPHINE SULFATE [Concomitant]
     Active Substance: MORPHINE SULFATE
  7. OMEPRAZOLE [Concomitant]
     Active Substance: OMEPRAZOLE
  8. SENNA [Concomitant]
     Active Substance: SENNA LEAF\SENNOSIDES\SENNOSIDES A AND B
  9. GLICLAZIDE [Concomitant]
     Active Substance: GLICLAZIDE

REACTIONS (10)
  - Myocarditis [Fatal]
  - Dyspnoea [Fatal]
  - Pneumonia [Fatal]
  - Steroid diabetes [Fatal]
  - Diabetic ketoacidosis [Fatal]
  - Malaise [Fatal]
  - Pyrexia [Fatal]
  - Pneumonitis [Fatal]
  - Asthenia [Fatal]
  - Off label use [Unknown]

NARRATIVE: CASE EVENT DATE: 20210709
